FAERS Safety Report 4910384-3 (Version None)
Quarter: 2006Q1

REPORT INFORMATION
  Report Type: 
  Country: None (occurrence: None)
  Receive Date: 20060213
  Receipt Date: 20050426
  Transmission Date: 20060701
  Serious: Yes (Hospitalization, Other)
  Sender: FDA-Public Use
  Company Number: US-MERCK-0504USA04897

PATIENT
  Age: 75 Year
  Sex: Male
  Weight: 82 kg

DRUGS (5)
  1. VIOXX [Suspect]
     Indication: OSTEOARTHRITIS
     Route: 048
     Dates: start: 20020824, end: 20030627
  2. VIOXX [Suspect]
     Route: 048
     Dates: start: 20020824, end: 20030627
  3. VIOXX [Suspect]
     Indication: ARTHRITIS
     Route: 048
     Dates: start: 20020824, end: 20030627
  4. VIOXX [Suspect]
     Route: 048
     Dates: start: 20020824, end: 20030627
  5. TYLENOL (CAPLET) [Concomitant]
     Route: 065

REACTIONS (16)
  - ARTERIOSCLEROSIS [None]
  - BLOOD PRESSURE INCREASED [None]
  - CATARACT [None]
  - CEREBRAL ISCHAEMIA [None]
  - CEREBROVASCULAR ACCIDENT [None]
  - DIABETES MELLITUS NON-INSULIN-DEPENDENT [None]
  - FATIGUE [None]
  - FRUSTRATION [None]
  - HERPES ZOSTER [None]
  - HIP FRACTURE [None]
  - HYPERTENSION [None]
  - IRRITABILITY [None]
  - LOW DENSITY LIPOPROTEIN INCREASED [None]
  - OSTEOARTHRITIS [None]
  - PERSONALITY CHANGE [None]
  - TRANSIENT ISCHAEMIC ATTACK [None]
